FAERS Safety Report 9850367 (Version 1)
Quarter: 2013Q4

REPORT INFORMATION
  Report Type: Spontaneous
  Country: US (occurrence: None)
  Receive Date: 20131127
  Receipt Date: 20131127
  Transmission Date: 20140711
  Serious: No
  Sender: FDA-Public Use
  Company Number: 224253LEO

PATIENT
  Age: 42 Year
  Sex: Female

DRUGS (1)
  1. PICATO (INGENOL MEBUTATE) (0.015 %, GEL) [Suspect]
     Indication: ACTINIC KERATOSIS
     Dosage: 1 D
     Route: 061
     Dates: start: 20131004, end: 20131006

REACTIONS (2)
  - Application site erythema [None]
  - Application site vesicles [None]
